FAERS Safety Report 18637765 (Version 2)
Quarter: 2020Q4

REPORT INFORMATION
  Report Type: Spontaneous
  Country: US (occurrence: US)
  Receive Date: 20201218
  Receipt Date: 20201224
  Transmission Date: 20210114
  Serious: Yes (Hospitalization, Other)
  Sender: FDA-Public Use
  Company Number: US-BRISTOL-MYERS SQUIBB COMPANY-BMS-2020-106668

PATIENT
  Age: 46 Year
  Sex: Female

DRUGS (8)
  1. BELATACEPT [Suspect]
     Active Substance: BELATACEPT
     Indication: IMMUNOSUPPRESSANT DRUG THERAPY
     Route: 065
  2. PREDNISONE. [Suspect]
     Active Substance: PREDNISONE
     Indication: IMMUNOSUPPRESSANT DRUG THERAPY
     Route: 065
  3. MYCOPHENOLATE MOFETIL. [Suspect]
     Active Substance: MYCOPHENOLATE MOFETIL
     Indication: IMMUNOSUPPRESSANT DRUG THERAPY
     Route: 065
  4. THYMOGLOBULIN [Suspect]
     Active Substance: LAPINE T-LYMPHOCYTE IMMUNE GLOBULIN
     Indication: TRANSPLANT REJECTION
     Dosage: 1.5MG/KG, 9 DOSAGE FORM
     Route: 065
  5. METHYLPREDNISOLONE. [Suspect]
     Active Substance: METHYLPREDNISOLONE
     Indication: TRANSPLANT REJECTION
     Route: 065
  6. ECULIZUMAB [Suspect]
     Active Substance: ECULIZUMAB
     Indication: TRANSPLANT REJECTION
     Route: 065
  7. VALGANCICLOVIR. [Concomitant]
     Active Substance: VALGANCICLOVIR
     Indication: PROPHYLAXIS
     Dosage: 900 MG ONCE A DAY, DOSE-ADJUSTED BASED ON RENAL FUNCTION
     Route: 048
  8. IMMUNOGLOBULIN [IMMUNOGLOBULIN HUMAN NORMAL] [Concomitant]
     Active Substance: HUMAN IMMUNOGLOBULIN G
     Indication: TRANSPLANT REJECTION
     Route: 042

REACTIONS (3)
  - Cervicitis [Recovering/Resolving]
  - Polyomavirus viraemia [Recovering/Resolving]
  - Cytomegalovirus gastrointestinal infection [Recovering/Resolving]
